FAERS Safety Report 18400790 (Version 1)
Quarter: 2020Q4

REPORT INFORMATION
  Report Type: Spontaneous
  Country: US (occurrence: US)
  Receive Date: 20201019
  Receipt Date: 20201019
  Transmission Date: 20210114
  Serious: Yes (Other)
  Sender: FDA-Public Use
  Company Number: NVSC2020US269975

PATIENT
  Sex: Female
  Weight: 61.23 kg

DRUGS (4)
  1. GLEEVEC [Suspect]
     Active Substance: IMATINIB MESYLATE
     Dosage: UNK (ON GLEEVEC SINCE 10 YEARS)
     Route: 065
  2. GLEEVEC [Suspect]
     Active Substance: IMATINIB MESYLATE
     Indication: GASTROINTESTINAL STROMAL TUMOUR
     Dosage: UNK (SWITCHED ON SUTENT)
     Route: 065
     Dates: start: 2009
  3. SUTENT [Suspect]
     Active Substance: SUNITINIB MALATE
     Indication: GASTROINTESTINAL STROMAL TUMOUR
     Dosage: 37.5 MG (12.5 MG 3 CAPSULE)
     Route: 065
     Dates: start: 20200609
  4. GLEEVEC [Suspect]
     Active Substance: IMATINIB MESYLATE
     Dosage: UNK (GLEEVEC WHICH WAS SLOWLY AMPED UP AS SHE WAS ON IT 10 YEARS)
     Route: 065

REACTIONS (5)
  - Condition aggravated [Unknown]
  - Neoplasm progression [Unknown]
  - Adverse drug reaction [Unknown]
  - Rash [Unknown]
  - Gastrointestinal stromal tumour [Unknown]
